FAERS Safety Report 9827761 (Version 1)
Quarter: 2013Q4

REPORT INFORMATION
  Report Type: Spontaneous
  Country: US (occurrence: None)
  Receive Date: 20131120
  Receipt Date: 20131120
  Transmission Date: 20140711
  Serious: No
  Sender: FDA-Public Use
  Company Number: 1000048004

PATIENT
  Age: 23 Year
  Sex: Male

DRUGS (2)
  1. VIIBRYD (VILAZODONE HYDROCHLORIDE) (10 MILLIGRAM, TABLETS) [Suspect]
     Indication: DEPRESSION
     Dosage: 10 MG (10 MG, 1 IN 1 D), ORAL
     Route: 048
     Dates: start: 201308, end: 201308
  2. ABILIFY (ARIPIRAZOLE) [Concomitant]

REACTIONS (3)
  - Depression [None]
  - Sluggishness [None]
  - Fatigue [None]
